FAERS Safety Report 16839304 (Version 2)
Quarter: 2019Q3

REPORT INFORMATION
  Report Type: Spontaneous
  Country: US (occurrence: US)
  Receive Date: 20190923
  Receipt Date: 20190925
  Transmission Date: 20191005
  Serious: No
  Sender: FDA-Public Use
  Company Number: US-PFIZER INC-2019404743

PATIENT
  Age: 90 Year
  Sex: Male

DRUGS (1)
  1. SUTENT [Suspect]
     Active Substance: SUNITINIB MALATE
     Indication: GASTRIC CANCER
     Dosage: 37.5 MG, CYCLIC(TAKE 1 CAPSULE BY MOUTH EVERY DAY EVERY 14 DAYS OF A 21 DAY CYCLE)
     Dates: start: 201905

REACTIONS (1)
  - No adverse event [Not Recovered/Not Resolved]
